FAERS Safety Report 4782193-X (Version None)
Quarter: 2005Q3

REPORT INFORMATION
  Report Type: 
  Country: None (occurrence: None)
  Receive Date: 20050927
  Receipt Date: 20050824
  Transmission Date: 20060218
  Serious: No
  Sender: FDA-Public Use
  Company Number: USA0508106357

PATIENT
  Age: 46 Year
  Sex: Male
  Weight: 120 kg

DRUGS (2)
  1. STRATTERA [Suspect]
     Indication: ATTENTION DEFICIT/HYPERACTIVITY DISORDER
     Dosage: 60 MG DAY
     Dates: start: 20050701, end: 20050701
  2. ADDERALL 10 [Concomitant]

REACTIONS (3)
  - FEELING ABNORMAL [None]
  - FLUSHING [None]
  - PARAESTHESIA [None]
